FAERS Safety Report 5515573-5 (Version None)
Quarter: 2007Q4

REPORT INFORMATION
  Report Type: 
  Country: None (occurrence: None)
  Receive Date: 20071113
  Receipt Date: 20070608
  Transmission Date: 20080405
  Serious: No
  Sender: FDA-Public Use
  Company Number: A0654868A

PATIENT
  Sex: Male

DRUGS (5)
  1. COREG [Suspect]
     Indication: HYPERTENSION
     Dosage: 6.5MG PER DAY
     Route: 048
     Dates: start: 20050901, end: 20061201
  2. LISINOPRIL [Concomitant]
  3. PLETAL [Concomitant]
  4. METOPROLOL SUCCINATE [Concomitant]
  5. ZOCOR [Concomitant]

REACTIONS (1)
  - HYPOTENSION [None]
